FAERS Safety Report 5324009-9 (Version None)
Quarter: 2007Q2

REPORT INFORMATION
  Report Type: 
  Country: None (occurrence: None)
  Receive Date: 20070514
  Receipt Date: 20070507
  Transmission Date: 20071010
  Serious: Yes (Life-Threatening, Hospitalization)
  Sender: FDA-Public Use
  Company Number: HQWYE422112MAR07

PATIENT
  Sex: Male

DRUGS (12)
  1. CORDARONE [Suspect]
     Indication: VENTRICULAR FIBRILLATION
     Route: 048
     Dates: end: 20070201
  2. CORDARONE [Interacting]
     Indication: VENTRICULAR TACHYCARDIA
     Dosage: ^COMMENCED VIA SATURATION DOSE (16 G)^
     Route: 065
     Dates: start: 20061001
  3. QUERTO [Concomitant]
     Indication: CONGESTIVE CARDIOMYOPATHY
     Route: 048
  4. QUERTO [Concomitant]
     Indication: AORTIC SURGERY
  5. FUROSEMID ^DAK^ [Concomitant]
     Indication: CONGESTIVE CARDIOMYOPATHY
     Dosage: 80 MG; FREQUENCY NOT SPECIFIED
     Route: 048
  6. FUROSEMID ^DAK^ [Concomitant]
     Indication: AORTIC SURGERY
  7. THIAZIDES [Concomitant]
     Indication: CONGESTIVE CARDIOMYOPATHY
     Dosage: NOT SPECIFIED
     Route: 048
  8. THIAZIDES [Concomitant]
     Indication: AORTIC SURGERY
  9. FALITHROM [Interacting]
     Indication: CONGESTIVE CARDIOMYOPATHY
     Dosage: NOT SPECIFIED
     Route: 048
  10. FALITHROM [Interacting]
     Indication: AORTIC SURGERY
  11. DIGITOXIN TAB [Concomitant]
     Indication: CONGESTIVE CARDIOMYOPATHY
     Dosage: NOT SPECIFIED
     Route: 048
  12. DIGITOXIN TAB [Concomitant]
     Indication: AORTIC SURGERY

REACTIONS (2)
  - DRUG INTERACTION [None]
  - HYPERTHYROIDISM [None]
